FAERS Safety Report 8964429 (Version 3)
Quarter: 2013Q1

REPORT INFORMATION
  Report Type: Report from Study
  Country: PL (occurrence: PL)
  Receive Date: 20121213
  Receipt Date: 20130130
  Transmission Date: 20140127
  Serious: Yes (Hospitalization)
  Sender: FDA-Public Use
  Company Number: PL-ROCHE-1164540

PATIENT
  Age: 20 Year
  Sex: Male
  Weight: 67.9 kg

DRUGS (4)
  1. PEG-INTERFERON ALFA 2A [Suspect]
     Indication: HEPATITIS C
     Dosage: RECENT DOSE RECEIVED ON 22/NOV/2012
     Route: 065
     Dates: start: 20120112, end: 20121122
  2. RIBAVIRIN [Suspect]
     Indication: HEPATITIS C
     Dosage: RECENT DOSE TAKEN ON 27/NOV/2012
     Route: 065
     Dates: start: 20120112, end: 20121127
  3. ALISPORIVIR [Suspect]
     Indication: HEPATITIS C
     Route: 048
     Dates: start: 20120112
  4. ALISPORIVIR [Suspect]
     Route: 048

REACTIONS (1)
  - Cerebellar syndrome [Recovering/Resolving]
